FAERS Safety Report 7293471-7 (Version None)
Quarter: 2011Q1

REPORT INFORMATION
  Report Type: 
  Country: None (occurrence: None)
  Receive Date: 20110215
  Receipt Date: 20110209
  Transmission Date: 20110831
  Serious: Yes (Life-Threatening, Hospitalization)
  Sender: FDA-Public Use
  Company Number: FR-BRISTOL-MYERS SQUIBB COMPANY-15540511

PATIENT
  Age: 74 Year
  Sex: Female

DRUGS (4)
  1. LASIX [Suspect]
  2. COAPROVEL [Suspect]
     Route: 048
  3. VOLTAREN [Suspect]
     Dosage: 1DF=75 MG/3 ML
     Route: 058
  4. METFORMINE [Suspect]

REACTIONS (3)
  - HYPERKALAEMIA [None]
  - LACTIC ACIDOSIS [None]
  - RENAL FAILURE ACUTE [None]
